FAERS Safety Report 10782988 (Version 5)
Quarter: 2015Q1

REPORT INFORMATION
  Report Type: Spontaneous
  Country: DE (occurrence: DE)
  Receive Date: 20150210
  Receipt Date: 20150310
  Transmission Date: 20150721
  Serious: Yes (Death, Hospitalization)
  Sender: FDA-Public Use
  Company Number: DE-ABBVIE-15P-062-1341873-00

PATIENT
  Sex: Male
  Weight: 72 kg

DRUGS (2)
  1. DUODOPA [Suspect]
     Active Substance: CARBIDOPA\LEVODOPA
     Indication: PARKINSON^S DISEASE
     Dosage: MD8.5ML, CRD 4.3ML/H, ED 2ML/HR
     Route: 050
     Dates: start: 20111125, end: 201502
  2. DUODOPA [Suspect]
     Active Substance: CARBIDOPA\LEVODOPA
     Dosage: MD8.5ML, CRD 4.3ML/H, ED 2ML/HR
     Route: 050
     Dates: start: 201502, end: 20150219

REACTIONS (4)
  - Wound complication [Fatal]
  - Stoma site inflammation [Fatal]
  - Catheter site discharge [Fatal]
  - Bronchopneumonia [Fatal]
